FAERS Safety Report 6359710-1 (Version None)
Quarter: 2009Q3

REPORT INFORMATION
  Report Type: 
  Country: None (occurrence: None)
  Receive Date: 20090917
  Receipt Date: 20090909
  Transmission Date: 20100115
  Serious: Yes (Death)
  Sender: FDA-Public Use
  Company Number: CA-PFIZER INC-2009250817

PATIENT
  Age: 51 Year

DRUGS (3)
  1. DETROL [Suspect]
  2. CLOZAPINE [Suspect]
  3. DITROPAN [Suspect]

REACTIONS (2)
  - COMPLETED SUICIDE [None]
  - OVERDOSE [None]
